FAERS Safety Report 16233740 (Version 1)
Quarter: 2019Q2

REPORT INFORMATION
  Report Type: Spontaneous
  Country: US (occurrence: US)
  Receive Date: 20190319
  Receipt Date: 20190319
  Transmission Date: 20190711
  Serious: Yes (Disabling)
  Sender: FDA-Public Use
  Company Number: None

PATIENT
  Age: 80 Year
  Sex: Female
  Weight: 56.7 kg

DRUGS (1)
  1. PROLIA [Suspect]
     Active Substance: DENOSUMAB

REACTIONS (9)
  - Quality of life decreased [None]
  - Nodule [None]
  - Musculoskeletal pain [None]
  - Myalgia [None]
  - Bone pain [None]
  - Rash [None]
  - Dyspnoea [None]
  - Mass [None]
  - Pain in extremity [None]

NARRATIVE: CASE EVENT DATE: 20180716
